FAERS Safety Report 5060277-9 (Version None)
Quarter: 2006Q3

REPORT INFORMATION
  Report Type: 
  Country: None (occurrence: None)
  Receive Date: 20060720
  Receipt Date: 20060703
  Transmission Date: 20061208
  Serious: Yes (Hospitalization)
  Sender: FDA-Public Use
  Company Number: 227502

PATIENT
  Age: 41 Year
  Sex: Male

DRUGS (9)
  1. AVASTIN [Suspect]
     Indication: HEPATIC NEOPLASM MALIGNANT
     Dosage: 570 MG, INTRAVENOUS
     Route: 042
     Dates: start: 20060516, end: 20060627
  2. CAPECITABINE (CAPECITABINE) [Suspect]
     Indication: HEPATIC NEOPLASM MALIGNANT
     Dosage: 1800 MG, ORAL
     Route: 048
     Dates: start: 20060516, end: 20060627
  3. LAMIVUDINE [Concomitant]
  4. SIROLIMUS [Concomitant]
  5. POTASSIUM CHLORIDE [Concomitant]
  6. ADEFOVIR DIPIVOXIL [Concomitant]
  7. NIFEDIPINE [Concomitant]
  8. PYRIDOXINE HCL [Concomitant]
  9. METOCLOPRAMIDE HCL (METOCLOPRAMIDE HYDROCHLORIDE) [Concomitant]

REACTIONS (1)
  - BLOOD CREATININE INCREASED [None]
